FAERS Safety Report 8375752-9 (Version None)
Quarter: 2012Q2

REPORT INFORMATION
  Report Type: 
  Country: None (occurrence: None)
  Receive Date: 20120518
  Receipt Date: 20120518
  Transmission Date: 20120825
  Serious: Yes (Hospitalization)
  Sender: FDA-Public Use
  Company Number: None

PATIENT
  Sex: Female
  Weight: 94.2 kg

DRUGS (5)
  1. METHOTREXATE [Suspect]
     Dosage: 45 MG
  2. CYTOXAN [Suspect]
     Dosage: 2000 MG
  3. CYTARABINE [Suspect]
     Dosage: 1200 MG
  4. MERCAPTOPURINE [Suspect]
     Dosage: 1750 MG
  5. VINCRISTINE SULFATE [Suspect]
     Dosage: 2 MG

REACTIONS (21)
  - FEBRILE NEUTROPENIA [None]
  - CRYING [None]
  - POST PROCEDURAL COMPLICATION [None]
  - DYSARTHRIA [None]
  - CONFUSIONAL STATE [None]
  - TACHYCARDIA [None]
  - HYPERTENSION [None]
  - ACTIVITIES OF DAILY LIVING IMPAIRED [None]
  - ENTEROCOCCUS TEST POSITIVE [None]
  - APHASIA [None]
  - COMPUTERISED TOMOGRAM ABNORMAL [None]
  - PANCREATITIS [None]
  - LETHARGY [None]
  - ASTHENIA [None]
  - PANCYTOPENIA [None]
  - MENINGISM [None]
  - INTRACRANIAL HYPOTENSION [None]
  - PATHOGEN RESISTANCE [None]
  - MUSCULOSKELETAL STIFFNESS [None]
  - HEPATIC FUNCTION ABNORMAL [None]
  - UNRESPONSIVE TO STIMULI [None]
